FAERS Safety Report 6739447-7 (Version None)
Quarter: 2010Q2

REPORT INFORMATION
  Report Type: 
  Country: None (occurrence: None)
  Receive Date: 20100521
  Receipt Date: 20100513
  Transmission Date: 20101027
  Serious: Yes (Death, Hospitalization, Disabling)
  Sender: FDA-Public Use
  Company Number: OSCN-NO-0801S-0019

PATIENT
  Age: 69 Year
  Sex: Female

DRUGS (11)
  1. OMNISCAN [Suspect]
     Indication: UTERINE POLYP
     Dosage: 20 ML, SINGLE DOSE, I.V.
     Route: 042
     Dates: start: 20061013, end: 20061013
  2. OMNISCAN [Suspect]
     Indication: UTERINE POLYP
     Dosage: 20 ML, SINGLE DOSE, I.V.
     Route: 042
     Dates: start: 20070214, end: 20070214
  3. ALLOPURINOL [Concomitant]
  4. LANSOPRAZOLE [Concomitant]
  5. ASPIRIN [Concomitant]
  6. WARFARIN SODIUM [Concomitant]
  7. FUROSEMIDE [Concomitant]
  8. OLOPATADINE HYDROCHLORIDE [Concomitant]
  9. CLONAZEPAM [Concomitant]
  10. PHOSBLOCK [Concomitant]
  11. FARESTON [Concomitant]

REACTIONS (20)
  - ARTHRALGIA [None]
  - BACK PAIN [None]
  - CELLULITIS [None]
  - DEEP VEIN THROMBOSIS [None]
  - FEELING HOT [None]
  - GAIT DISTURBANCE [None]
  - HAEMODIALYSIS [None]
  - HAEMOGLOBIN DECREASED [None]
  - HEPATIC STEATOSIS [None]
  - MUSCULOSKELETAL STIFFNESS [None]
  - NEPHROGENIC SYSTEMIC FIBROSIS [None]
  - PAIN IN EXTREMITY [None]
  - PARAESTHESIA [None]
  - PERITONEAL DIALYSIS [None]
  - RENAL ATROPHY [None]
  - RENAL CYST [None]
  - RESTLESS LEGS SYNDROME [None]
  - RESTLESSNESS [None]
  - SCLEREMA [None]
  - UTERINE ENLARGEMENT [None]
